FAERS Safety Report 6367415-6 (Version None)
Quarter: 2009Q3

REPORT INFORMATION
  Report Type: 
  Country: None (occurrence: None)
  Receive Date: 20090921
  Receipt Date: 20090727
  Transmission Date: 20100115
  Serious: Yes (Hospitalization)
  Sender: FDA-Public Use
  Company Number: A0807950A

PATIENT
  Sex: Male
  Weight: 20 kg

DRUGS (3)
  1. SERETIDE [Suspect]
     Dosage: 1PUFF THREE TIMES PER DAY
     Route: 055
     Dates: start: 20080201
  2. SINGULAIR [Concomitant]
     Dosage: 4MG PER DAY
     Route: 048
     Dates: start: 20090501
  3. BAMBEC [Concomitant]
     Dosage: 10ML PER DAY
     Dates: start: 20090501

REACTIONS (4)
  - ASTHMATIC CRISIS [None]
  - DRUG INEFFECTIVE [None]
  - ILL-DEFINED DISORDER [None]
  - OVERDOSE [None]
